FAERS Safety Report 18817604 (Version 1)
Quarter: 2021Q1

REPORT INFORMATION
  Report Type: Spontaneous
  Country: US (occurrence: US)
  Receive Date: 20210201
  Receipt Date: 20210201
  Transmission Date: 20210419
  Serious: No
  Sender: FDA-Public Use
  Company Number: US-SA-2021SA027363

PATIENT
  Age: 57 Year
  Sex: Male

DRUGS (1)
  1. LOVENOX [Suspect]
     Active Substance: ENOXAPARIN SODIUM
     Indication: URINARY BLADDER HAEMORRHAGE
     Dosage: DRUG STRUCTURE DOSAGE : 100MG DRUG INTERVAL DOSAGE : EVERY 12 HOURS
     Route: 065
     Dates: start: 20210114

REACTIONS (1)
  - Injection site discolouration [Unknown]
